FAERS Safety Report 8517534-0 (Version None)
Quarter: 2012Q3

REPORT INFORMATION
  Report Type: 
  Country: None (occurrence: None)
  Receive Date: 20120718
  Receipt Date: 20120705
  Transmission Date: 20120928
  Serious: Yes (Other)
  Sender: FDA-Public Use
  Company Number: BR-ROCHE-1084983

PATIENT
  Sex: Female

DRUGS (1)
  1. INTERFERON ALFA-2A [Suspect]
     Indication: VIRAL INFECTION

REACTIONS (3)
  - NEOPLASM MALIGNANT [None]
  - EMOTIONAL DISORDER [None]
  - DISEASE PROGRESSION [None]
